FAERS Safety Report 17187227 (Version 1)
Quarter: 2019Q4

REPORT INFORMATION
  Report Type: Spontaneous
  Country: ES (occurrence: ES)
  Receive Date: 20191220
  Receipt Date: 20191220
  Transmission Date: 20200122
  Serious: Yes (Other)
  Sender: FDA-Public Use
  Company Number: ES-BAUSCH-BL-2019-065406

PATIENT
  Age: 72 Year
  Sex: Female

DRUGS (2)
  1. ENALAPRIL MALEATE,HYDROCHLOROTHIAZIDE [Suspect]
     Active Substance: ENALAPRIL MALEATE\HYDROCHLOROTHIAZIDE
     Indication: HYPERTENSION
     Route: 048
     Dates: start: 201909, end: 20190920
  2. ACEDIUR [CAPTOPRIL/HYDROCHLOROTHIAZIDE] [Interacting]
     Active Substance: CAPTOPRIL\HYDROCHLOROTHIAZIDE
     Indication: HYPERTENSION
     Route: 048
     Dates: start: 201909, end: 20190920

REACTIONS (3)
  - Fall [Recovered/Resolved]
  - Hypotension [Recovered/Resolved]
  - Product selection error [Recovered/Resolved]

NARRATIVE: CASE EVENT DATE: 201909
